FAERS Safety Report 12952362 (Version 1)
Quarter: 2016Q4

REPORT INFORMATION
  Report Type: Spontaneous
  Country: US (occurrence: US)
  Receive Date: 20161117
  Receipt Date: 20161117
  Transmission Date: 20170207
  Serious: Yes (Hospitalization, Other)
  Sender: FDA-Public Use
  Company Number: US-BAUSCH-BL-2016-027807

PATIENT
  Age: 49 Year
  Sex: Male

DRUGS (1)
  1. XIFAXAN [Suspect]
     Active Substance: RIFAXIMIN
     Indication: LIVER DISORDER
     Route: 065
     Dates: start: 2015

REACTIONS (4)
  - Oedema peripheral [Unknown]
  - Dyspnoea [Unknown]
  - Ascites [Unknown]
  - Fluid retention [Unknown]

NARRATIVE: CASE EVENT DATE: 20161105
